FAERS Safety Report 7718193-7 (Version None)
Quarter: 2011Q3

REPORT INFORMATION
  Report Type: 
  Country: None (occurrence: None)
  Receive Date: 20110830
  Receipt Date: 20110819
  Transmission Date: 20111222
  Serious: Yes (Disabling, Other)
  Sender: FDA-Public Use
  Company Number: PHEH2009US16955

PATIENT
  Sex: Male

DRUGS (68)
  1. CLINDAMYCIN [Concomitant]
     Dosage: 150 MG, UNK
  2. DEXAMETHASONE [Concomitant]
     Dosage: 4 MG, UNK
  3. NOVOBIOCIN [Concomitant]
  4. FUROSEMIDE [Concomitant]
     Dosage: 40 MG, UNK
  5. BENZONATATE [Concomitant]
  6. HUMIBID [Concomitant]
  7. ZITHROMAX [Concomitant]
  8. FAMVIR [Concomitant]
  9. ATACAND [Concomitant]
  10. NEXIUM [Concomitant]
  11. SIMAVASTATIN [Concomitant]
  12. CHLORHEXIDINE GLUCONATE [Concomitant]
  13. CARISOPRODOL [Concomitant]
     Dosage: 350 MG, UNK
  14. LANTUS [Concomitant]
  15. ACCUPRIL [Concomitant]
  16. PROMETHAZINE W/ CODEINE [Concomitant]
  17. PHENAZOPYRIDINE HCL TAB [Concomitant]
  18. ATIVAN [Concomitant]
  19. MUPIROCIN [Concomitant]
  20. AVAPRO [Concomitant]
     Dosage: 150 MG, UNK
  21. HYDROCODONE BITARTRATE [Concomitant]
  22. TUSSIONEX [Concomitant]
  23. QUINAPRIL HCL [Concomitant]
  24. PROCHLORPERAZINE [Concomitant]
  25. DUONEB [Concomitant]
  26. TARCEVA [Concomitant]
  27. DOXYCYCLA [Concomitant]
  28. ALPRAZOLAM [Concomitant]
     Dosage: 0.5 MG, UNK
  29. LIDOCAINE [Concomitant]
  30. LIPITOR [Concomitant]
  31. ZYRTEC [Concomitant]
  32. ZETIA [Concomitant]
  33. LOPROX [Concomitant]
  34. VYTORIN [Concomitant]
  35. HYDROMORPHONE HCL [Concomitant]
  36. INSULIN [Concomitant]
  37. FOLIC ACID [Concomitant]
     Dosage: 1 MG, UNK
  38. GLUCOTROL [Concomitant]
  39. GUAIFED-PD [Concomitant]
  40. PROTONIX [Concomitant]
  41. CEPHALEXIN [Concomitant]
  42. VALTREX [Concomitant]
  43. ATROP [Concomitant]
     Dosage: 2.5 MG, UNK
  44. POTASSIUM CHLORIDE [Concomitant]
     Dosage: 10 MEQ, UNK
  45. ZOVIRAX [Concomitant]
  46. ADVANTAGE [Concomitant]
  47. AZMACORT [Concomitant]
  48. METOPROLOL TARTRATE [Concomitant]
  49. SERTRALINE HYDROCHLORIDE [Concomitant]
  50. ONDANSETRON [Concomitant]
  51. ZOMETA [Suspect]
  52. OXYCODONE HCL [Concomitant]
  53. FLOMAX [Concomitant]
  54. ACTOS [Concomitant]
  55. NASONEX [Concomitant]
  56. LEVAQUIN [Concomitant]
  57. CIPROFLOXACIN [Concomitant]
  58. CYCLOBENZAPRINE [Concomitant]
  59. FLUCONAZOLE [Concomitant]
  60. FINASTERIDE [Concomitant]
  61. PENICILLIN VK [Concomitant]
     Dosage: 500 MG, UNK
  62. METRONIDAZOLE [Concomitant]
  63. AUGMENTIN '125' [Concomitant]
  64. NEUPOGEN [Concomitant]
  65. ARANESP [Concomitant]
  66. NAPROXEN [Concomitant]
  67. PREDNISOLONE ACETATE [Concomitant]
  68. DURAGESIC-100 [Concomitant]

REACTIONS (36)
  - ANHEDONIA [None]
  - PULMONARY MASS [None]
  - OSTEONECROSIS OF JAW [None]
  - INJURY [None]
  - METASTASES TO BONE [None]
  - PROSTATOMEGALY [None]
  - URETERAL NEOPLASM [None]
  - PAIN [None]
  - HILAR LYMPHADENOPATHY [None]
  - PNEUMOTHORAX [None]
  - DYSPNOEA [None]
  - PAIN IN EXTREMITY [None]
  - BACK PAIN [None]
  - NECK PAIN [None]
  - INGROWING NAIL [None]
  - NEPHROLITHIASIS [None]
  - FALL [None]
  - BONE EROSION [None]
  - ANXIETY [None]
  - PARONYCHIA [None]
  - PROSTATE CANCER METASTATIC [None]
  - DENTAL CARIES [None]
  - COUGH [None]
  - NAUSEA [None]
  - HEPATIC MASS [None]
  - METASTASES TO LIVER [None]
  - METASTASES TO SPINE [None]
  - METASTASES TO CENTRAL NERVOUS SYSTEM [None]
  - NON-SMALL CELL LUNG CANCER METASTATIC [None]
  - HYPOACUSIS [None]
  - VOMITING [None]
  - ARTHRALGIA [None]
  - SWELLING [None]
  - HAND FRACTURE [None]
  - GROIN PAIN [None]
  - TESTICULAR PAIN [None]
